FAERS Safety Report 9619856 (Version 1)
Quarter: 2013Q4

REPORT INFORMATION
  Report Type: Spontaneous
  Country: US (occurrence: US)
  Receive Date: 20131014
  Receipt Date: 20131014
  Transmission Date: 20140711
  Serious: No
  Sender: FDA-Public Use
  Company Number: US-BAYER-2013-124009

PATIENT
  Sex: Female

DRUGS (9)
  1. ALEVE TABLET [Suspect]
     Indication: ARTHRITIS
     Dosage: 1 DF, QD
     Route: 048
     Dates: start: 20131006
  2. BAYER ASPIRIN REGIMEN ADULT LOW STRENGTH [Concomitant]
  3. LEVOTHYROXINE [Concomitant]
  4. VITAMIN D3 [Concomitant]
  5. GLUCOSAMINE [Concomitant]
  6. CALCIUM [Concomitant]
  7. FISH OIL [Concomitant]
  8. VITAMIN E [Concomitant]
  9. VITAMIN A [Concomitant]

REACTIONS (1)
  - Somnolence [Not Recovered/Not Resolved]
